FAERS Safety Report 9121556 (Version 2)
Quarter: 2013Q4

REPORT INFORMATION
  Report Type: Spontaneous
  Country: GB (occurrence: GB)
  Receive Date: 20130227
  Receipt Date: 20131004
  Transmission Date: 20140711
  Serious: Yes (Life-Threatening)
  Sender: FDA-Public Use
  Company Number: GB-009507513-1302GBR010942

PATIENT
  Age: 77 Year
  Sex: Male
  Weight: 106 kg

DRUGS (6)
  1. FINASTERIDE [Suspect]
     Indication: BENIGN PROSTATIC HYPERPLASIA
     Dosage: 5 MG
     Route: 048
     Dates: start: 20120618, end: 20120812
  2. LISINOPRIL [Concomitant]
     Route: 048
  3. ATENOLOL [Concomitant]
  4. METFORMIN [Concomitant]
  5. PIOGLITAZONE HYDROCHLORIDE [Concomitant]
  6. TAMSULOSIN HYDROCHLORIDE [Concomitant]

REACTIONS (2)
  - Suicidal ideation [Recovered/Resolved]
  - Emotional poverty [Recovered/Resolved]
